FAERS Safety Report 17731154 (Version 3)
Quarter: 2020Q4

REPORT INFORMATION
  Report Type: Spontaneous
  Country: GB (occurrence: GB)
  Receive Date: 20200430
  Receipt Date: 20201224
  Transmission Date: 20210113
  Serious: Yes (Death, Hospitalization)
  Sender: FDA-Public Use
  Company Number: NVSC2020GB117713

PATIENT
  Age: 4 Year
  Sex: Female

DRUGS (8)
  1. BASILIXIMAB [Suspect]
     Active Substance: BASILIXIMAB
     Indication: IMMUNOSUPPRESSANT DRUG THERAPY
     Dosage: UNK
     Route: 065
  2. PREDNISOLONE. [Suspect]
     Active Substance: PREDNISOLONE
     Dosage: 0.75 MG/KG, QD (.75 MG/KG DAILY; DAY 14 TO 20)
     Route: 048
  3. METHYLPREDNISOLONE. [Suspect]
     Active Substance: METHYLPREDNISOLONE
     Indication: IMMUNOSUPPRESSANT DRUG THERAPY
     Dosage: 2 MG/KG, QD (2 MG/KG DAILY; FOR THE FIRST 14 DAYS OR UNTIL COMMENCEMENT OF ENTERAL FEEDS)
     Route: 042
  4. PREDNISOLONE. [Suspect]
     Active Substance: PREDNISOLONE
     Dosage: 1 MG/KG, QD (1 MG/KG DAILY; 7 TO 13 DAYS)
     Route: 048
  5. PREDNISOLONE. [Suspect]
     Active Substance: PREDNISOLONE
     Indication: IMMUNOSUPPRESSANT DRUG THERAPY
     Dosage: 2 MG/KG, QD (2 MG/KG DAILY; 1 TO 6 DAYS)
     Route: 048
  6. TACROLIMUS. [Suspect]
     Active Substance: TACROLIMUS
     Indication: INTESTINAL TRANSPLANT
     Dosage: 8 NANOGRAM PER MILLIGRAM (TROUGH LEVEL: 5-8 NG/ML)
     Route: 065
  7. TACROLIMUS. [Suspect]
     Active Substance: TACROLIMUS
     Indication: IMMUNOSUPPRESSANT DRUG THERAPY
     Dosage: TROUGH LEVEL: 5-8 NG/ML.
     Route: 065
  8. PREDNISOLONE. [Suspect]
     Active Substance: PREDNISOLONE
     Dosage: 0.5 MG/KG, QD (.5 MG/KG DAILY; DAY 21 TO 28)
     Route: 048

REACTIONS (6)
  - Post transplant lymphoproliferative disorder [Fatal]
  - Product use in unapproved indication [Unknown]
  - Drug ineffective [Fatal]
  - Transplant rejection [Fatal]
  - Epstein-Barr virus associated lymphoproliferative disorder [Fatal]
  - Smooth muscle cell neoplasm [Fatal]
